FAERS Safety Report 22144503 (Version 2)
Quarter: 2023Q1

REPORT INFORMATION
  Report Type: Spontaneous
  Country: US (occurrence: US)
  Receive Date: 20230328
  Receipt Date: 20230331
  Transmission Date: 20230417
  Serious: No
  Sender: FDA-Public Use
  Company Number: US-Blueprint Medicines Corporation-998

PATIENT
  Sex: Female

DRUGS (2)
  1. AYVAKIT [Suspect]
     Active Substance: AVAPRITINIB
     Indication: Gastrointestinal stromal tumour
     Route: 048
     Dates: start: 20221119
  2. AYVAKIT [Suspect]
     Active Substance: AVAPRITINIB
     Route: 065

REACTIONS (7)
  - Laboratory test abnormal [Unknown]
  - Fatigue [Recovering/Resolving]
  - Asthenia [Unknown]
  - Swelling face [Recovering/Resolving]
  - Salivary hypersecretion [Recovering/Resolving]
  - Sensation of foreign body [Recovering/Resolving]
  - Tongue disorder [Unknown]
